FAERS Safety Report 6581329-8 (Version None)
Quarter: 2010Q1

REPORT INFORMATION
  Report Type: 
  Country: None (occurrence: None)
  Receive Date: 20100215
  Receipt Date: 20100104
  Transmission Date: 20100710
  Serious: Yes (Hospitalization, Other)
  Sender: FDA-Public Use
  Company Number: FR-JNJFOC-20100100951

PATIENT
  Age: 67 Year
  Sex: Female

DRUGS (6)
  1. DAKTARIN [Suspect]
     Route: 048
  2. DAKTARIN [Suspect]
     Indication: TONGUE COATED
     Route: 048
  3. COUMADIN [Interacting]
     Indication: DRUG USE FOR UNKNOWN INDICATION
     Route: 048
  4. AMOXICILLIN [Interacting]
     Indication: DRUG USE FOR UNKNOWN INDICATION
     Route: 048
  5. SECTRAL [Concomitant]
  6. LERCANIDIPINE [Concomitant]

REACTIONS (4)
  - DRUG INTERACTION [None]
  - HAEMATURIA [None]
  - INTERNATIONAL NORMALISED RATIO INCREASED [None]
  - OVERDOSE [None]
